FAERS Safety Report 8136948-4 (Version None)
Quarter: 2012Q1

REPORT INFORMATION
  Report Type: 
  Country: None (occurrence: None)
  Receive Date: 20120214
  Receipt Date: 20120213
  Transmission Date: 20120608
  Serious: Yes (Disabling)
  Sender: FDA-Public Use
  Company Number: AU-MERCK-1112USA03467

PATIENT
  Age: 68 Year
  Sex: Male

DRUGS (3)
  1. SINEMET [Suspect]
     Dosage: 0.5 TABLET, 2/24
     Route: 048
  2. SINEMET [Suspect]
     Dosage: 0.5 TABLET, 2/52
     Route: 048
  3. SINEMET [Suspect]
     Indication: PARKINSON'S DISEASE
     Route: 048

REACTIONS (4)
  - ASTHENIA [None]
  - MOOD ALTERED [None]
  - TEARFULNESS [None]
  - DYSKINESIA [None]
